FAERS Safety Report 6977894-9 (Version None)
Quarter: 2010Q3

REPORT INFORMATION
  Report Type: 
  Country: None (occurrence: None)
  Receive Date: 20100913
  Receipt Date: 20100906
  Transmission Date: 20110219
  Serious: Yes (Other)
  Sender: FDA-Public Use
  Company Number: US-SHIRE-SPV1-2010-01537

PATIENT
  Age: 5 Year
  Sex: Male

DRUGS (2)
  1. INTUNIV [Suspect]
     Indication: PRODUCT USED FOR UNKNOWN INDICATION
     Dosage: 1 MG, UNKNOWN
     Route: 048
     Dates: start: 20100801, end: 20100801
  2. INTUNIV [Suspect]
     Dosage: 2 MG, UNKNOWN
     Route: 048
     Dates: start: 20100901

REACTIONS (4)
  - DISTURBANCE IN ATTENTION [None]
  - DYSKINESIA [None]
  - MUSCLE TWITCHING [None]
  - PSYCHOMOTOR SKILLS IMPAIRED [None]
